FAERS Safety Report 10638324 (Version 3)
Quarter: 2015Q3

REPORT INFORMATION
  Report Type: Spontaneous
  Country: US (occurrence: US)
  Receive Date: 20141208
  Receipt Date: 20150723
  Transmission Date: 20151125
  Serious: Yes (Death, Other)
  Sender: FDA-Public Use
  Company Number: US-GLAXOSMITHKLINE-US2014GSK032548

PATIENT
  Age: 63 Year
  Sex: Female
  Weight: 61.22 kg

DRUGS (3)
  1. TAFINLAR [Suspect]
     Active Substance: DABRAFENIB MESYLATE
     Indication: THYROID CANCER
     Dosage: 150 MG, BID
     Route: 048
     Dates: start: 20140822, end: 20141201
  2. EVEROLIMUS [Suspect]
     Active Substance: EVEROLIMUS
     Indication: PRODUCT USED FOR UNKNOWN INDICATION
     Dosage: UNK, U
     Route: 048
  3. MEKINIST [Suspect]
     Active Substance: TRAMETINIB DIMETHYL SULFOXIDE
     Indication: THYROID CANCER
     Dosage: 2 MG, QD
     Route: 048
     Dates: start: 20140822, end: 20141201

REACTIONS (3)
  - Tumour invasion [Unknown]
  - Gene mutation identification test positive [Unknown]
  - Tracheomalacia [Fatal]

NARRATIVE: CASE EVENT DATE: 201404
